FAERS Safety Report 16519515 (Version 5)
Quarter: 2019Q4

REPORT INFORMATION
  Report Type: Report from Study
  Country: None (occurrence: TR)
  Receive Date: 20190702
  Receipt Date: 20191007
  Transmission Date: 20200122
  Serious: Yes (Death, Hospitalization)
  Sender: FDA-Public Use
  Company Number: TR-ABBVIE-19K-161-2839261-00

PATIENT
  Age: 70 Year
  Sex: Male
  Weight: 60 kg

DRUGS (6)
  1. DUODOPA [Suspect]
     Active Substance: CARBIDOPA\LEVODOPA
     Dosage: MORNING DOSE(ML):8.00CONTINUES DOSE(ML):4.30 EXTRA DOSE(ML):1.50
     Route: 050
     Dates: start: 20190729, end: 20190923
  2. DICLOFLAM [Concomitant]
     Indication: PAIN IN EXTREMITY
     Route: 048
  3. STALEVO [Concomitant]
     Active Substance: CARBIDOPA\ENTACAPONE\LEVODOPA
     Indication: PARKINSON^S DISEASE
     Route: 048
     Dates: start: 201806
  4. PK MERZ [Concomitant]
     Active Substance: AMANTADINE SULFATE
     Indication: PARKINSON^S DISEASE
     Route: 048
     Dates: start: 20190607
  5. FLUCONAZOLE. [Concomitant]
     Active Substance: FLUCONAZOLE
     Indication: FUNGAL INFECTION
     Route: 048
  6. DUODOPA [Suspect]
     Active Substance: CARBIDOPA\LEVODOPA
     Indication: PARKINSON^S DISEASE
     Dosage: MORNING DOSE(ML):8.00CONTINUES DOSE(ML):4.30 EXTRA DOSE(ML):1.50
     Route: 045
     Dates: start: 20190607, end: 20190701

REACTIONS (3)
  - Pneumonia [Fatal]
  - Pneumonia aspiration [Unknown]
  - Small intestinal obstruction [Recovered/Resolved]

NARRATIVE: CASE EVENT DATE: 2019
